FAERS Safety Report 20030257 (Version 1)
Quarter: 2021Q4

REPORT INFORMATION
  Report Type: Spontaneous
  Country: ES (occurrence: ES)
  Receive Date: 20211103
  Receipt Date: 20211103
  Transmission Date: 20220303
  Serious: Yes (Hospitalization)
  Sender: FDA-Public Use
  Company Number: ES-ROCHE-2937202

PATIENT
  Sex: Female

DRUGS (5)
  1. TRASTUZUMAB [Suspect]
     Active Substance: TRASTUZUMAB
     Dosage: UNK
     Route: 065
  2. PERTUZUMAB [Suspect]
     Active Substance: PERTUZUMAB
     Dosage: UNK
     Route: 065
  3. ADO-TRASTUZUMAB EMTANSINE [Suspect]
     Active Substance: ADO-TRASTUZUMAB EMTANSINE
     Dosage: UNK
     Route: 065
  4. TUKYSA [Suspect]
     Active Substance: TUCATINIB
     Indication: Breast cancer metastatic
     Dosage: FREQ:.5 D;MEDICATION ARRIVED IN AUGUST 2021
     Route: 065
  5. CAPECITABINE [Suspect]
     Active Substance: CAPECITABINE
     Dosage: UNK
     Route: 048

REACTIONS (2)
  - Diarrhoea [Unknown]
  - Hypoalbuminaemia [Unknown]
